FAERS Safety Report 6336332-X (Version None)
Quarter: 2009Q3

REPORT INFORMATION
  Report Type: 
  Country: None (occurrence: None)
  Receive Date: 20090901
  Receipt Date: 20090827
  Transmission Date: 20100115
  Serious: Yes (Other)
  Sender: FDA-Public Use
  Company Number: US-AMGEN-KDL352528

PATIENT
  Sex: Male
  Weight: 66.3 kg

DRUGS (2)
  1. PROCRIT [Suspect]
     Indication: DRUG USE FOR UNKNOWN INDICATION
  2. HYDROXYUREA [Concomitant]

REACTIONS (1)
  - HAEMOGLOBIN DECREASED [None]
